FAERS Safety Report 7710728-3 (Version None)
Quarter: 2011Q3

REPORT INFORMATION
  Report Type: 
  Country: None (occurrence: None)
  Receive Date: 20110825
  Receipt Date: 20110817
  Transmission Date: 20111222
  Serious: Yes (Other)
  Sender: FDA-Public Use
  Company Number: US-US-EMD SERONO, INC.-7065758

PATIENT
  Sex: Female

DRUGS (3)
  1. HYPERTENSIVE MEDICATIONS [Concomitant]
     Indication: HYPERTENSION
  2. REBIF [Suspect]
     Indication: MULTIPLE SCLEROSIS
     Route: 058
     Dates: start: 20090526
  3. HORMONE REPLACEMENT THERAPY [Suspect]
     Indication: MENOPAUSE
     Dates: start: 19980101, end: 20110401

REACTIONS (2)
  - CONSTIPATION [None]
  - BREAST CANCER IN SITU [None]
